FAERS Safety Report 17703788 (Version 3)
Quarter: 2020Q3

REPORT INFORMATION
  Report Type: Spontaneous
  Country: US (occurrence: US)
  Receive Date: 20200424
  Receipt Date: 20200925
  Transmission Date: 20201102
  Serious: Yes (Other)
  Sender: FDA-Public Use
  Company Number: US-GILEAD-2020-0460165

PATIENT
  Age: 57 Year
  Sex: Male
  Weight: 78.01 kg

DRUGS (28)
  1. LOSARTAN POTASSIUM. [Concomitant]
     Active Substance: LOSARTAN POTASSIUM
  2. CLONAZEPAM. [Concomitant]
     Active Substance: CLONAZEPAM
  3. ESZOPICLONE. [Concomitant]
     Active Substance: ESZOPICLONE
  4. SELZENTRY [Concomitant]
     Active Substance: MARAVIROC
  5. BIKTARVY [Concomitant]
     Active Substance: BICTEGRAVIR SODIUM\EMTRICITABINE\TENOFOVIR ALAFENAMIDE FUMARATE
     Indication: HIV INFECTION
  6. GABAPENTIN. [Concomitant]
     Active Substance: GABAPENTIN
  7. LUNESTA [Concomitant]
     Active Substance: ESZOPICLONE
  8. ACETAMINOPHEN. [Concomitant]
     Active Substance: ACETAMINOPHEN
  9. VIRACEPT [Concomitant]
     Active Substance: NELFINAVIR MESYLATE
  10. DEMEROL [Concomitant]
     Active Substance: MEPERIDINE HYDROCHLORIDE
  11. ISENTRESS [Concomitant]
     Active Substance: RALTEGRAVIR POTASSIUM
  12. REYATAZ [Concomitant]
     Active Substance: ATAZANAVIR SULFATE
  13. LEVOFLOXACIN. [Concomitant]
     Active Substance: LEVOFLOXACIN
  14. TRUVADA [Suspect]
     Active Substance: EMTRICITABINE\TENOFOVIR DISOPROXIL FUMARATE
     Indication: HIV INFECTION
     Dosage: UNK
     Route: 048
     Dates: start: 2005, end: 201904
  15. FOSAMAX [Concomitant]
     Active Substance: ALENDRONATE SODIUM
  16. VERAPAMIL [Concomitant]
     Active Substance: VERAPAMIL HYDROCHLORIDE
  17. MORPHINE [Concomitant]
     Active Substance: MORPHINE
  18. ACYCLOVIR [ACICLOVIR] [Concomitant]
     Active Substance: ACYCLOVIR
  19. NORVIR [Concomitant]
     Active Substance: RITONAVIR
  20. ATORVASTATIN [Concomitant]
     Active Substance: ATORVASTATIN
  21. VANCOMYCIN [Concomitant]
     Active Substance: VANCOMYCIN
  22. COMBIVIR [Concomitant]
     Active Substance: LAMIVUDINE\ZIDOVUDINE
  23. VITAMIN D [VITAMIN D NOS] [Concomitant]
     Active Substance: VITAMIN D NOS
  24. INTELENCE [Concomitant]
     Active Substance: ETRAVIRINE
  25. SUSTIVA [Concomitant]
     Active Substance: EFAVIRENZ
  26. ATRIPLA [Suspect]
     Active Substance: EFAVIRENZ\EMTRICITABINE\TENOFOVIR DISOPROXIL FUMARATE
     Indication: HIV INFECTION
     Dosage: UNK
     Route: 048
     Dates: start: 20090729, end: 20100519
  27. FORTEO [Concomitant]
     Active Substance: TERIPARATIDE
  28. CRIXIVAN [Concomitant]
     Active Substance: INDINAVIR SULFATE

REACTIONS (17)
  - Fracture [Unknown]
  - Chronic kidney disease [Unknown]
  - Economic problem [Not Recovered/Not Resolved]
  - Nausea [Unknown]
  - Arthralgia [Unknown]
  - Dizziness [Unknown]
  - Osteomalacia [Unknown]
  - Pathological fracture [Not Recovered/Not Resolved]
  - Anxiety [Not Recovered/Not Resolved]
  - Bone density decreased [Unknown]
  - Depression [Not Recovered/Not Resolved]
  - Pain [Not Recovered/Not Resolved]
  - Osteonecrosis [Unknown]
  - Emotional distress [Not Recovered/Not Resolved]
  - Blood creatinine increased [Unknown]
  - Osteoporosis [Not Recovered/Not Resolved]
  - Bone loss [Unknown]

NARRATIVE: CASE EVENT DATE: 201804
